FAERS Safety Report 10067609 (Version 1)
Quarter: 2014Q2

REPORT INFORMATION
  Report Type: Spontaneous
  Country: KR (occurrence: KR)
  Receive Date: 20140409
  Receipt Date: 20140409
  Transmission Date: 20141212
  Serious: Yes (Life-Threatening, Hospitalization)
  Sender: FDA-Public Use
  Company Number: KR-PERRIGO-14KR003498

PATIENT
  Age: 43 Year
  Sex: Female

DRUGS (2)
  1. ACETAMINOPHEN 650MG ER 544 [Suspect]
     Indication: UPPER RESPIRATORY TRACT INFECTION
     Dosage: UNK, UNK
     Route: 048
  2. OTHER RESPIRATORY SYSTEM PRODUCTS [Concomitant]
     Indication: ASTHMA
     Dosage: UNK
     Route: 055

REACTIONS (3)
  - Toxic epidermal necrolysis [Recovered/Resolved]
  - Urticaria [Unknown]
  - Drug hypersensitivity [Unknown]
